FAERS Safety Report 13671910 (Version 1)
Quarter: 2017Q2

REPORT INFORMATION
  Report Type: Spontaneous
  Country: JP (occurrence: JP)
  Receive Date: 20170620
  Receipt Date: 20170620
  Transmission Date: 20170830
  Serious: Yes (Life-Threatening)
  Sender: FDA-Public Use
  Company Number: PHHY2017JP086497

PATIENT
  Age: 52 Year
  Sex: Male

DRUGS (1)
  1. CEFTRIAXONE SODIUM. [Suspect]
     Active Substance: CEFTRIAXONE SODIUM
     Indication: EVIDENCE BASED TREATMENT
     Dosage: 1 G, QD
     Route: 042

REACTIONS (2)
  - Blood pressure systolic decreased [Recovered/Resolved]
  - Septic shock [Recovered/Resolved]
